FAERS Safety Report 5364813-4 (Version None)
Quarter: 2007Q2

REPORT INFORMATION
  Report Type: 
  Country: None (occurrence: None)
  Receive Date: 20070621
  Receipt Date: 20070611
  Transmission Date: 20071010
  Serious: Yes (Other)
  Sender: FDA-Public Use
  Company Number: PHHO2007BR10064

PATIENT
  Age: 53 Year
  Sex: Female

DRUGS (5)
  1. DIOVAN AMLO [Suspect]
     Indication: HYPERTENSION
     Dosage: 160/5MG
     Route: 048
  2. CAPOTEN [Concomitant]
  3. LEXOTAN [Concomitant]
  4. DORMONID [Concomitant]
  5. TOFRANIL [Concomitant]

REACTIONS (11)
  - ABDOMINAL DISTENSION [None]
  - AGITATION [None]
  - DIZZINESS [None]
  - GENERALISED OEDEMA [None]
  - NAUSEA [None]
  - NERVOUSNESS [None]
  - OEDEMA PERIPHERAL [None]
  - RETCHING [None]
  - SUICIDAL IDEATION [None]
  - SWELLING FACE [None]
  - WEIGHT INCREASED [None]
